FAERS Safety Report 9321771 (Version 1)
Quarter: 2013Q2

REPORT INFORMATION
  Report Type: Report from Study
  Country: DE (occurrence: DE)
  Receive Date: 20130531
  Receipt Date: 20130531
  Transmission Date: 20140414
  Serious: Yes (Death, Hospitalization, Other)
  Sender: FDA-Public Use
  Company Number: DE-ABBOTT-13P-062-1096364-00

PATIENT
  Age: 88 Year
  Sex: Female
  Weight: 58.5 kg

DRUGS (1)
  1. ZEMPLAR [Suspect]
     Indication: HYPERPARATHYROIDISM SECONDARY
     Route: 048
     Dates: start: 20120601, end: 20130209

REACTIONS (16)
  - Septic shock [Fatal]
  - Multi-organ failure [Fatal]
  - Device related infection [Fatal]
  - Lactic acidosis [Fatal]
  - Tachypnoea [Unknown]
  - Hypotonia [Unknown]
  - Atrial fibrillation [Unknown]
  - Breath sounds abnormal [Unknown]
  - Respiratory disorder [Unknown]
  - Metabolic acidosis [Unknown]
  - Staphylococcal infection [Unknown]
  - Somnolence [Unknown]
  - Peripheral coldness [Unknown]
  - Peripheral pulse decreased [Unknown]
  - Unevaluable event [Unknown]
  - Tachycardia [Unknown]
